FAERS Safety Report 4435266-5 (Version None)
Quarter: 2004Q3

REPORT INFORMATION
  Report Type: 
  Country: None (occurrence: None)
  Receive Date: 20040826
  Receipt Date: 20040826
  Transmission Date: 20050211
  Serious: Yes (Hospitalization)
  Sender: FDA-Public Use
  Company Number: None

PATIENT
  Age: 42 Year
  Sex: Male

DRUGS (3)
  1. SERTRALINE HCL [Suspect]
     Indication: DEPRESSION
     Dosage: ORAL
     Route: 048
     Dates: start: 20031201, end: 20040529
  2. TRAMADOL/APAP 37.5/325 MG ORTHO MCNEIL [Suspect]
     Indication: BACK PAIN
     Dosage: ONE TAB ORAL
     Route: 048
     Dates: start: 20040520, end: 20040529
  3. TIZANIDINE HCL [Concomitant]

REACTIONS (7)
  - AZOTAEMIA [None]
  - HYPERCHLORAEMIA [None]
  - HYPERNATRAEMIA [None]
  - LIVER FUNCTION TEST ABNORMAL [None]
  - RESPIRATORY FAILURE [None]
  - RHABDOMYOLYSIS [None]
  - SEROTONIN SYNDROME [None]
